FAERS Safety Report 7535678-7 (Version None)
Quarter: 2011Q2

REPORT INFORMATION
  Report Type: 
  Country: None (occurrence: None)
  Receive Date: 20110602
  Receipt Date: 20110518
  Transmission Date: 20111010
  Serious: Yes (Other)
  Sender: FDA-Public Use
  Company Number: AUR-APL-2011-01656

PATIENT
  Age: 50 Year
  Sex: Male

DRUGS (10)
  1. SIMVASTATIN [Suspect]
  2. LISINOPRIL [Suspect]
  3. COGENTIN [Suspect]
  4. JANUMET [Suspect]
  5. FERROUS SULFATE TAB [Suspect]
  6. KLONOPIN [Suspect]
  7. TRICOR [Suspect]
  8. ATENOLOL [Suspect]
  9. RISPERIDONE [Suspect]
  10. ASPIRIN [Suspect]

REACTIONS (18)
  - SPEECH DISORDER [None]
  - ATRIOVENTRICULAR BLOCK FIRST DEGREE [None]
  - DIALYSIS [None]
  - CHROMATURIA [None]
  - BLOOD PRESSURE SYSTOLIC DECREASED [None]
  - LOSS OF CONSCIOUSNESS [None]
  - ELECTROCARDIOGRAM QRS COMPLEX PROLONGED [None]
  - RESPIRATORY RATE INCREASED [None]
  - TOXICITY TO VARIOUS AGENTS [None]
  - ASTHENIA [None]
  - PAIN [None]
  - PALLOR [None]
  - BRADYCARDIA [None]
  - DRUG INTERACTION [None]
  - RENAL FAILURE [None]
  - HYPERKALAEMIA [None]
  - OEDEMA PERIPHERAL [None]
  - BLOOD GLUCOSE INCREASED [None]
